FAERS Safety Report 25832339 (Version 3)
Quarter: 2025Q4

REPORT INFORMATION
  Report Type: Report from Study
  Country: US (occurrence: US)
  Receive Date: 20250922
  Receipt Date: 20251118
  Transmission Date: 20260119
  Serious: No
  Sender: TRAVERE THERAPEUTICS
  Company Number: US-TRAVERE-2025TVT01419

PATIENT
  Age: 75 Year
  Sex: Female
  Weight: 119 kg

DRUGS (17)
  1. FILSPARI [Suspect]
     Active Substance: SPARSENTAN
     Indication: IgA nephropathy
     Route: 048
     Dates: start: 202505
  2. FILSPARI [Suspect]
     Active Substance: SPARSENTAN
     Route: 048
  3. TORSEMIDE [Concomitant]
     Active Substance: TORSEMIDE
  4. POTASSIUM CHLORIDE [Concomitant]
     Active Substance: POTASSIUM CHLORIDE
  5. METOPROLOL TARTRATE [Concomitant]
     Active Substance: METOPROLOL TARTRATE
  6. DOFETILIDE [Concomitant]
     Active Substance: DOFETILIDE
  7. FOLIC ACID [Concomitant]
     Active Substance: FOLIC ACID
  8. ROPINIROLE HYDROCHLORIDE [Concomitant]
     Active Substance: ROPINIROLE HYDROCHLORIDE
  9. VENLAFAXINE [Concomitant]
     Active Substance: VENLAFAXINE HYDROCHLORIDE
  10. ASPIRIN [Concomitant]
     Active Substance: ASPIRIN
  11. VITAMIN B12 [Concomitant]
     Active Substance: CYANOCOBALAMIN
  12. VITAMIN D [Concomitant]
     Active Substance: VITAMIN D NOS
  13. IRON [Concomitant]
     Active Substance: IRON
  14. NOVOLOG [Concomitant]
     Active Substance: INSULIN ASPART
  15. MAGNESIUM GLYCINATE [Concomitant]
     Active Substance: MAGNESIUM GLYCINATE
  16. Hair Skin and Nails [Concomitant]
  17. XANAX [Concomitant]
     Active Substance: ALPRAZOLAM

REACTIONS (4)
  - Dysuria [Unknown]
  - Illness [Unknown]
  - Fungal infection [Unknown]
  - Headache [Unknown]

NARRATIVE: CASE EVENT DATE: 20250529
